FAERS Safety Report 19834219 (Version 1)
Quarter: 2021Q3

REPORT INFORMATION
  Report Type: Spontaneous
  Country: US (occurrence: US)
  Receive Date: 20210915
  Receipt Date: 20210915
  Transmission Date: 20211014
  Serious: Yes (Other)
  Sender: FDA-Public Use
  Company Number: US-009507513-2109USA002268

PATIENT
  Age: 59 Year
  Sex: Female

DRUGS (2)
  1. CARBOPLATIN;FLUOROURACIL [Concomitant]
  2. KEYTRUDA [Suspect]
     Active Substance: PEMBROLIZUMAB
     Indication: SQUAMOUS CELL CARCINOMA OF THE ORAL CAVITY

REACTIONS (1)
  - Cytomegalovirus infection reactivation [Recovered/Resolved]
